FAERS Safety Report 8608057-9 (Version None)
Quarter: 2012Q3

REPORT INFORMATION
  Report Type: 
  Country: None (occurrence: None)
  Receive Date: 20120821
  Receipt Date: 20120815
  Transmission Date: 20120928
  Serious: Yes (Other)
  Sender: FDA-Public Use
  Company Number: US-SANOFI-AVENTIS-2012SA056792

PATIENT
  Age: 85 Year
  Sex: Male

DRUGS (5)
  1. MULTAQ [Suspect]
     Route: 048
     Dates: start: 20111101, end: 20120806
  2. COUMADIN [Concomitant]
  3. SIMVASTATIN [Concomitant]
     Dates: start: 20070101
  4. AMBIEN [Concomitant]
  5. ATENOLOL [Concomitant]
     Dates: start: 19870101

REACTIONS (3)
  - ATRIAL FIBRILLATION [None]
  - SLEEP APNOEA SYNDROME [None]
  - ANXIETY [None]
